FAERS Safety Report 7506321-8 (Version None)
Quarter: 2011Q2

REPORT INFORMATION
  Report Type: 
  Country: None (occurrence: None)
  Receive Date: 20110526
  Receipt Date: 20101101
  Transmission Date: 20111010
  Serious: No
  Sender: FDA-Public Use
  Company Number: US-ABBOTT-10P-163-0682497-00

PATIENT
  Sex: Male
  Weight: 72.64 kg

DRUGS (8)
  1. ZEMPLAR [Suspect]
     Indication: NEPHROPATHY
     Dates: start: 20100701, end: 20100901
  2. SODIUM BICARBONATE [Concomitant]
     Indication: NEPHROPATHY
  3. CYANOCOBALAMIN [Concomitant]
     Indication: VITAMIN SUPPLEMENTATION
     Route: 050
  4. LEVOTHYROXINE SODIUM [Concomitant]
     Indication: BLOOD TRIGLYCERIDES INCREASED
  5. ZEMPLAR [Suspect]
     Dates: start: 20100901
  6. LEVOTHYROXINE SODIUM [Concomitant]
     Indication: BLOOD CHOLESTEROL INCREASED
  7. ALLOPURINOL [Concomitant]
     Indication: GOUT
  8. NU-IRON [Concomitant]
     Indication: MINERAL SUPPLEMENTATION

REACTIONS (6)
  - NECK PAIN [None]
  - INSOMNIA [None]
  - INFLUENZA [None]
  - OROPHARYNGEAL PAIN [None]
  - MYALGIA [None]
  - HEADACHE [None]
